FAERS Safety Report 19383873 (Version 4)
Quarter: 2022Q2

REPORT INFORMATION
  Report Type: Report from Study
  Country: US (occurrence: US)
  Receive Date: 20210607
  Receipt Date: 20220421
  Transmission Date: 20220721
  Serious: No
  Sender: FDA-Public Use
  Company Number: US-NOVARTISTESTPH-NVSC2021US120417

PATIENT
  Age: 48 Year
  Sex: Female

DRUGS (6)
  1. ENTRESTO [Suspect]
     Active Substance: SACUBITRIL\VALSARTAN
     Indication: Cardiac failure
     Dosage: 1 DOSAGE FORM, BID
     Route: 048
     Dates: start: 20210409
  2. ENTRESTO [Suspect]
     Active Substance: SACUBITRIL\VALSARTAN
     Indication: Cardiac failure chronic
     Dosage: 0.5 DOSAGE FORM, BID (24.26 MG)
     Route: 048
     Dates: start: 202105
  3. ENTRESTO [Suspect]
     Active Substance: SACUBITRIL\VALSARTAN
     Indication: Cardiac failure
  4. FUROSEMIDE [Suspect]
     Active Substance: FUROSEMIDE
     Indication: Product used for unknown indication
     Route: 048
     Dates: start: 202104
  5. METOPROLOL [Concomitant]
     Active Substance: METOPROLOL
     Indication: Product used for unknown indication
     Dosage: UNK
     Route: 048
     Dates: start: 202104
  6. FARXIGA [Concomitant]
     Active Substance: DAPAGLIFLOZIN PROPANEDIOL
     Indication: Product used for unknown indication
     Dosage: UNK
     Route: 065
     Dates: start: 202104

REACTIONS (6)
  - Hypotension [Unknown]
  - Muscle spasms [Unknown]
  - Gait disturbance [Not Recovered/Not Resolved]
  - Dyspnoea [Unknown]
  - Wrong technique in product usage process [Unknown]
  - Meniscus injury [Unknown]

NARRATIVE: CASE EVENT DATE: 20210401
